FAERS Safety Report 5606101-4 (Version None)
Quarter: 2008Q1

REPORT INFORMATION
  Report Type: 
  Country: None (occurrence: None)
  Receive Date: 20080123
  Receipt Date: 20080107
  Transmission Date: 20080703
  Serious: Yes (Disabling)
  Sender: FDA-Public Use
  Company Number: 230001L08CAN

PATIENT
  Age: 41 Year
  Sex: Female

DRUGS (3)
  1. REBIF [Suspect]
     Indication: MULTIPLE SCLEROSIS
     Dosage: 22 MCG, SUBCUTANEOUS; 44 MCG, SUBCUTANEOUS
     Route: 058
     Dates: start: 19970901, end: 20040101
  2. REBIF [Suspect]
     Indication: MULTIPLE SCLEROSIS
     Dosage: 22 MCG, SUBCUTANEOUS; 44 MCG, SUBCUTANEOUS
     Route: 058
     Dates: start: 20040101, end: 20040801
  3. CELECOXIB [Concomitant]

REACTIONS (2)
  - MALIGNANT MELANOMA [None]
  - SENSORY DISTURBANCE [None]
